FAERS Safety Report 19063416 (Version 1)
Quarter: 2021Q1

REPORT INFORMATION
  Report Type: Spontaneous
  Country: MY (occurrence: MY)
  Receive Date: 20210326
  Receipt Date: 20210326
  Transmission Date: 20210420
  Serious: Yes (Other)
  Sender: FDA-Public Use
  Company Number: MY-PFIZER INC-2021302063

PATIENT
  Sex: Female

DRUGS (2)
  1. SIROLIMUS. [Suspect]
     Active Substance: SIROLIMUS
     Indication: INTRAVASCULAR PAPILLARY ENDOTHELIAL HYPERPLASIA
     Dosage: 0.1MG/KG/DAY IN DIVIDED DOSES, TARGETED TO TROUGH LEVELS OF 8?15NG/ML
     Route: 048
  2. SIROLIMUS. [Suspect]
     Active Substance: SIROLIMUS
     Indication: HAEMANGIOMA-THROMBOCYTOPENIA SYNDROME

REACTIONS (5)
  - Off label use [Unknown]
  - Hepatitis [Unknown]
  - Rash [Unknown]
  - Immunosuppressant drug level increased [Unknown]
  - Diarrhoea [Unknown]
